FAERS Safety Report 4704661-9 (Version None)
Quarter: 2005Q2

REPORT INFORMATION
  Report Type: 
  Country: None (occurrence: None)
  Receive Date: 20050629
  Receipt Date: 20050603
  Transmission Date: 20051028
  Serious: Yes (Hospitalization)
  Sender: FDA-Public Use
  Company Number: 2005-06-1056

PATIENT
  Age: 55 Year
  Sex: Female

DRUGS (6)
  1. AIROMIR HFA (SALBUTAMOL SULFATE) ORAL AEROSOL   'LIKE PROVENTIL HFA' [Suspect]
     Dosage: ORAL AER INH
     Route: 048
  2. PROLAIR (BECLOMETHASONE DIPROPRIONATE) [Suspect]
  3. QVAR AUTHOHALER HFA (BECLOMETHASONE DIPROPIONATE) [Suspect]
  4. AMODEX [Suspect]
     Indication: INFECTION PROPHYLAXIS
     Dosage: ORAL
     Route: 048
     Dates: start: 20050425, end: 20050502
  5. AERIUS (DESLORATADINE) TABLETS [Suspect]
     Indication: PRURITUS
     Dosage: 5MG TABS ORAL
     Route: 048
     Dates: start: 20050504
  6. AERIUS (DESLORATADINE) TABLETS [Suspect]
     Indication: RASH
     Dosage: 5MG TABS ORAL
     Route: 048
     Dates: start: 20050504

REACTIONS (3)
  - PRURITUS [None]
  - RASH ERYTHEMATOUS [None]
  - TOOTH EXTRACTION [None]
